FAERS Safety Report 11791470 (Version 4)
Quarter: 2016Q1

REPORT INFORMATION
  Report Type: Spontaneous
  Country: FR (occurrence: FR)
  Receive Date: 20151201
  Receipt Date: 20160122
  Transmission Date: 20160525
  Serious: Yes (Hospitalization, Other)
  Sender: FDA-Public Use
  Company Number: FR-BAYER-2015-473273

PATIENT
  Age: 76 Year
  Sex: Female
  Weight: 70 kg

DRUGS (8)
  1. VOLTARENE [Concomitant]
     Active Substance: DICLOFENAC SODIUM
     Dosage: UNK
  2. DOLIPRANE [Concomitant]
     Active Substance: ACETAMINOPHEN
  3. STIVARGA [Suspect]
     Active Substance: REGORAFENIB
     Indication: COLORECTAL CANCER METASTATIC
     Dosage: 120 MG,QD
     Route: 048
     Dates: start: 20151105, end: 20151115
  4. TAREG [Concomitant]
     Active Substance: VALSARTAN
     Indication: HYPERTENSION
     Dosage: 40 MG, QD
     Route: 048
     Dates: start: 2014
  5. STIVARGA [Suspect]
     Active Substance: REGORAFENIB
     Indication: METASTASES TO LIVER
  6. STIVARGA [Suspect]
     Active Substance: REGORAFENIB
     Indication: METASTASES TO LYMPH NODES
  7. VASELINE PURE [Concomitant]
     Active Substance: PETROLATUM
  8. STIVARGA [Suspect]
     Active Substance: REGORAFENIB
     Indication: METASTASES TO PERITONEUM

REACTIONS (15)
  - Fall [Recovering/Resolving]
  - Tendon disorder [Recovering/Resolving]
  - Neuropathy peripheral [Recovering/Resolving]
  - Hyponatraemia [Recovering/Resolving]
  - Amnesia [Recovering/Resolving]
  - Limb malformation [Recovering/Resolving]
  - Confusional state [Recovering/Resolving]
  - Syncope [Recovering/Resolving]
  - Incoherent [Recovering/Resolving]
  - Tachycardia [Recovering/Resolving]
  - Skin candida [Recovering/Resolving]
  - Pyrexia [Recovered/Resolved]
  - Lymphopenia [Recovering/Resolving]
  - Asthenia [Recovering/Resolving]
  - Disorientation [Recovering/Resolving]

NARRATIVE: CASE EVENT DATE: 201511
